FAERS Safety Report 6193249-1 (Version None)
Quarter: 2009Q2

REPORT INFORMATION
  Report Type: 
  Country: None (occurrence: None)
  Receive Date: 20090514
  Receipt Date: 20090501
  Transmission Date: 20091009
  Serious: Yes (Hospitalization)
  Sender: FDA-Public Use
  Company Number: 2008S1015608

PATIENT
  Age: 43 Year
  Sex: Male
  Weight: 86.1834 kg

DRUGS (3)
  1. EXTENDED PHENYTOIN SODIUM CAPSULES, UPS (100 MG) [Suspect]
     Indication: CONVULSION
     Dosage: 300 MG; AT BEDTIME; ORAL; 500 MG; AT BEDTIME; ORAL
     Route: 048
     Dates: start: 20060201
  2. EXTENDED PHENYTOIN SODIUM CAPSULES, UPS (100 MG) [Suspect]
     Indication: EPILEPSY
     Dosage: 300 MG; AT BEDTIME; ORAL; 500 MG; AT BEDTIME; ORAL
     Route: 048
     Dates: start: 20060201
  3. PRIMATENE /00003901/ [Concomitant]

REACTIONS (3)
  - GRAND MAL CONVULSION [None]
  - PETIT MAL EPILEPSY [None]
  - STATUS EPILEPTICUS [None]
